FAERS Safety Report 15643191 (Version 1)
Quarter: 2018Q4

REPORT INFORMATION
  Report Type: Spontaneous
  Country: US (occurrence: US)
  Receive Date: 20181120
  Receipt Date: 20181120
  Transmission Date: 20190205
  Serious: Yes (Other)
  Sender: FDA-Public Use
  Company Number: None

PATIENT
  Age: 42 Year
  Sex: Female
  Weight: 99.45 kg

DRUGS (22)
  1. CALCIUM CARBONATE. [Concomitant]
     Active Substance: CALCIUM CARBONATE
     Dates: start: 20180701, end: 20180708
  2. FENTANYL. [Concomitant]
     Active Substance: FENTANYL
     Dates: start: 20180630, end: 20180702
  3. INSULIN LISPRO [Concomitant]
     Active Substance: INSULIN LISPRO
     Dates: start: 20180630, end: 20180701
  4. MEPERIDINE [Concomitant]
     Active Substance: MEPERIDINE
     Dates: start: 20180630, end: 20180630
  5. POTASSIUM CHLORIDE. [Concomitant]
     Active Substance: POTASSIUM CHLORIDE
     Dates: start: 20180625, end: 20180704
  6. GRANISETRON [Concomitant]
     Active Substance: GRANISETRON
     Dates: start: 20180625, end: 20180629
  7. POTASSIUM + SODIUM PHOSPHATES [Concomitant]
     Dates: start: 20180628, end: 20180709
  8. PROPOFOL. [Concomitant]
     Active Substance: PROPOFOL
     Dates: start: 20180630, end: 20180701
  9. VANCOMYCIN [Concomitant]
     Active Substance: VANCOMYCIN
     Dates: start: 20180630, end: 20180630
  10. MAGNESIUM OXIDE. [Concomitant]
     Active Substance: MAGNESIUM OXIDE
     Dates: start: 20180629, end: 20180703
  11. METHYLPREDNISOLONE. [Concomitant]
     Active Substance: METHYLPREDNISOLONE
     Dates: start: 20180630, end: 20180630
  12. MIDAZOLAM [Concomitant]
     Active Substance: MIDAZOLAM HYDROCHLORIDE
     Dates: start: 20180630, end: 20180702
  13. DEXMEDETOMIDINE. [Concomitant]
     Active Substance: DEXMEDETOMIDINE
     Dates: start: 20180702, end: 20180702
  14. METRONIDAZOLE. [Concomitant]
     Active Substance: METRONIDAZOLE
     Dates: start: 20180628, end: 20180629
  15. TBO-FILGRASTIM [Concomitant]
     Active Substance: TBO-FILGRASTIM
     Dates: start: 20180701, end: 20180703
  16. TOBRAMYCIN. [Concomitant]
     Active Substance: TOBRAMYCIN
     Dates: start: 20180629, end: 20180629
  17. AXICABTAGENE CILOLEUCEL [Suspect]
     Active Substance: AXICABTAGENE CILOLEUCEL
     Indication: DIFFUSE LARGE B-CELL LYMPHOMA
     Dosage: ?          OTHER FREQUENCY:ONCE;?
     Route: 041
     Dates: start: 20180625, end: 20180625
  18. FAMOTIDINE. [Concomitant]
     Active Substance: FAMOTIDINE
     Dates: start: 20180630, end: 20180709
  19. MEROPENEM. [Concomitant]
     Active Substance: MEROPENEM
     Dates: start: 20180629, end: 20180706
  20. FLUCONAZOLE. [Concomitant]
     Active Substance: FLUCONAZOLE
     Dates: start: 20180626, end: 20180709
  21. LORAZEPAM. [Concomitant]
     Active Substance: LORAZEPAM
     Dates: start: 20180628, end: 20180701
  22. OLANZAPINE ZYDIS [Concomitant]
     Active Substance: OLANZAPINE
     Dates: start: 20180628, end: 20180630

REACTIONS (1)
  - Cytokine release syndrome [None]

NARRATIVE: CASE EVENT DATE: 20180625
